FAERS Safety Report 11604753 (Version 3)
Quarter: 2015Q4

REPORT INFORMATION
  Report Type: Report from Study
  Country: US (occurrence: US)
  Receive Date: 20151007
  Receipt Date: 20151130
  Transmission Date: 20160304
  Serious: No
  Sender: FDA-Public Use
  Company Number: PHEH2015US019585

PATIENT
  Sex: Male

DRUGS (1)
  1. COSENTYX [Suspect]
     Active Substance: SECUKINUMAB
     Indication: PSORIASIS
     Dosage: 300 MG, QMO Q4WEEKS
     Route: 058

REACTIONS (3)
  - Drug ineffective [Unknown]
  - Costovertebral angle tenderness [Unknown]
  - Psoriasis [Unknown]
